FAERS Safety Report 11122926 (Version 1)
Quarter: 2015Q2

REPORT INFORMATION
  Report Type: Spontaneous
  Country: CH (occurrence: CH)
  Receive Date: 20150519
  Receipt Date: 20150519
  Transmission Date: 20150821
  Serious: Yes (Life-Threatening, Hospitalization)
  Sender: FDA-Public Use
  Company Number: CH-ABBVIE-15P-151-1393838-00

PATIENT
  Age: 56 Year
  Sex: Female
  Weight: 83 kg

DRUGS (11)
  1. VI-DE 3 [Concomitant]
     Indication: PRODUCT USED FOR UNKNOWN INDICATION
     Route: 065
  2. FOLIC ACID. [Concomitant]
     Active Substance: FOLIC ACID
     Indication: PROPHYLAXIS
     Route: 048
     Dates: end: 201504
  3. OXYCONTIN [Concomitant]
     Active Substance: OXYCODONE HYDROCHLORIDE
     Indication: PSORIATIC ARTHROPATHY
     Route: 048
  4. CLARITHROMYCIN. [Suspect]
     Active Substance: CLARITHROMYCIN
     Indication: BRONCHOPNEUMOPATHY
     Route: 048
     Dates: start: 20150313, end: 20150320
  5. METHOTREXATE [Interacting]
     Active Substance: METHOTREXATE
     Indication: PSORIATIC ARTHROPATHY
     Route: 030
     Dates: start: 2010, end: 201504
  6. CONDROSULF [Concomitant]
     Active Substance: CHONDROITIN SULFATE (CHICKEN)
     Indication: PSORIATIC ARTHROPATHY
     Route: 048
     Dates: end: 201504
  7. IMOVANE [Concomitant]
     Active Substance: ZOPICLONE
     Indication: PRODUCT USED FOR UNKNOWN INDICATION
     Route: 048
  8. MAGNESIOCARD ORANGE [Concomitant]
     Indication: PRODUCT USED FOR UNKNOWN INDICATION
     Route: 048
     Dates: end: 201504
  9. CALCIMAGON D3 [Concomitant]
     Active Substance: CALCIUM\CHOLECALCIFEROL
     Indication: PRODUCT USED FOR UNKNOWN INDICATION
  10. CYMBALTA [Concomitant]
     Active Substance: DULOXETINE HYDROCHLORIDE
     Indication: DEPRESSION
     Route: 048
  11. NEXIUM [Concomitant]
     Active Substance: ESOMEPRAZOLE MAGNESIUM
     Indication: PRODUCT USED FOR UNKNOWN INDICATION
     Route: 048

REACTIONS (8)
  - Cytomegalovirus colitis [Recovering/Resolving]
  - Herpes zoster cutaneous disseminated [Recovering/Resolving]
  - Myelitis [Recovering/Resolving]
  - Paresis anal sphincter [Recovering/Resolving]
  - Superinfection bacterial [Recovering/Resolving]
  - Gastrointestinal ulcer haemorrhage [Recovered/Resolved]
  - Drug interaction [Recovering/Resolving]
  - Cytomegalovirus viraemia [Recovered/Resolved]

NARRATIVE: CASE EVENT DATE: 20150313
